FAERS Safety Report 9934483 (Version 2)
Quarter: 2014Q1

REPORT INFORMATION
  Report Type: Spontaneous
  Country: FR (occurrence: FR)
  Receive Date: 20140228
  Receipt Date: 20140305
  Transmission Date: 20141002
  Serious: Yes (Life-Threatening, Hospitalization)
  Sender: FDA-Public Use
  Company Number: FR-SA-2014SA023943

PATIENT
  Age: 4 Year
  Sex: Male
  Weight: 15.7 kg

DRUGS (4)
  1. MYOZYME [Suspect]
     Indication: GLYCOGEN STORAGE DISEASE TYPE II
     Route: 042
  2. PULMICORT [Concomitant]
     Dosage: 2 AEROSOL PER DAY
  3. VENTOLINE [Concomitant]
     Dosage: 2 AEROSOLS PER DAY
  4. ATROVENT [Concomitant]
     Dosage: 1 AEROSOL PER DAY

REACTIONS (3)
  - Respiratory distress [Not Recovered/Not Resolved]
  - Hypercapnia [Not Recovered/Not Resolved]
  - Interstitial lung disease [Not Recovered/Not Resolved]
